APPROVED DRUG PRODUCT: MILNACIPRAN HYDROCHLORIDE
Active Ingredient: MILNACIPRAN HYDROCHLORIDE
Strength: 50MG
Dosage Form/Route: TABLET;ORAL
Application: A205071 | Product #003 | TE Code: AB
Applicant: BRECKENRIDGE PHARMACEUTICAL INC
Approved: Jan 27, 2016 | RLD: No | RS: No | Type: RX